FAERS Safety Report 7213982-X (Version None)
Quarter: 2011Q1

REPORT INFORMATION
  Report Type: 
  Country: None (occurrence: None)
  Receive Date: 20110106
  Receipt Date: 20110104
  Transmission Date: 20110831
  Serious: Yes (Hospitalization)
  Sender: FDA-Public Use
  Company Number: US-BRISTOL-MYERS SQUIBB COMPANY-15315898

PATIENT
  Age: 64 Year
  Sex: Male
  Weight: 63 kg

DRUGS (11)
  1. GLIPIZIDE [Concomitant]
     Indication: DIABETES MELLITUS
     Dates: start: 20030101
  2. RANITIDINE [Concomitant]
     Dates: start: 20100401
  3. MORPHINE SULFATE [Concomitant]
     Indication: PAIN
     Dates: start: 20100401
  4. MULTI-VITAMINS [Concomitant]
     Dates: start: 20100201
  5. ENALAPRIL MALEATE [Concomitant]
     Indication: HYPERTENSION
  6. FLOMAX [Concomitant]
     Indication: URINARY RETENTION
     Dosage: 1DF-0.4(UNITS NOT SPECIFIED)
     Dates: start: 20080101
  7. CARBOPLATIN [Suspect]
     Indication: NON-SMALL CELL LUNG CANCER
     Dosage: 1 IN  21D
     Route: 042
     Dates: start: 20100810
  8. FERROUS SULFATE [Concomitant]
     Dates: start: 20100609
  9. PACLITAXEL [Suspect]
     Indication: NON-SMALL CELL LUNG CANCER
     Dosage: 1 IN  21D
     Route: 042
     Dates: start: 20100810
  10. FINASTERIDE [Concomitant]
     Dates: start: 20080101
  11. METFORMIN HCL [Concomitant]
     Indication: DIABETES MELLITUS
     Dates: start: 20070101

REACTIONS (1)
  - FEBRILE NEUTROPENIA [None]
